FAERS Safety Report 15099442 (Version 5)
Quarter: 2019Q1

REPORT INFORMATION
  Report Type: Report from Study
  Country: US (occurrence: US)
  Receive Date: 20180702
  Receipt Date: 20190114
  Transmission Date: 20190417
  Serious: Yes (Hospitalization)
  Sender: FDA-Public Use
  Company Number: US-ACTELION-A-US2018-174379

PATIENT
  Age: 70 Year
  Sex: Male

DRUGS (15)
  1. NOVOLOG [Concomitant]
     Active Substance: INSULIN ASPART
     Dosage: SLIDING SCALE
  2. PREDNISONE. [Concomitant]
     Active Substance: PREDNISONE
     Dosage: 30 MG, QD
     Route: 048
     Dates: end: 201806
  3. OXYGEN. [Concomitant]
     Active Substance: OXYGEN
  4. TRADJENTA [Concomitant]
     Active Substance: LINAGLIPTIN
  5. TOUJEO [Concomitant]
     Active Substance: INSULIN GLARGINE
     Dosage: SLIDING SCALE
  6. DAPSON [Concomitant]
     Active Substance: DAPSONE
     Dosage: 100 MG, QD
     Route: 048
     Dates: start: 20180516, end: 20180620
  7. NOVOLIN [Concomitant]
     Active Substance: INSULIN HUMAN
  8. PREDNISONE. [Concomitant]
     Active Substance: PREDNISONE
     Dosage: UNK
     Dates: end: 20180820
  9. VICTOZA [Suspect]
     Active Substance: LIRAGLUTIDE
     Indication: DIABETES MELLITUS
     Dosage: SLIDING SCALE
     Route: 065
  10. INSULIN [Concomitant]
     Active Substance: INSULIN NOS
     Dosage: 30 U, QD
     Route: 065
     Dates: start: 201805
  11. SILDENAFIL. [Concomitant]
     Active Substance: SILDENAFIL
     Dosage: 20 MG, QD
     Route: 048
     Dates: start: 201805
  12. OPSUMIT [Suspect]
     Active Substance: MACITENTAN
     Indication: PULMONARY ARTERIAL HYPERTENSION
     Dosage: 10 MG, QD
     Route: 048
     Dates: start: 20180529
  13. INSULIN [Concomitant]
     Active Substance: INSULIN NOS
     Dosage: 20 U, QD
     Dates: start: 201805
  14. VITAMIN D3 [Concomitant]
     Active Substance: CHOLECALCIFEROL
  15. VITAMIN B12 [Concomitant]
     Active Substance: CYANOCOBALAMIN

REACTIONS (12)
  - Oedema [Not Recovered/Not Resolved]
  - Fall [Recovered/Resolved]
  - Weight increased [Unknown]
  - Lacrimation increased [Unknown]
  - Hospitalisation [Unknown]
  - Dizziness postural [Not Recovered/Not Resolved]
  - Drug hypersensitivity [Unknown]
  - Eye swelling [Unknown]
  - Pyrexia [Recovered/Resolved]
  - Chills [Recovered/Resolved]
  - Increased tendency to bruise [Recovered/Resolved]
  - Oedema peripheral [Not Recovered/Not Resolved]

NARRATIVE: CASE EVENT DATE: 201806
